APPROVED DRUG PRODUCT: QUDEXY XR
Active Ingredient: TOPIRAMATE
Strength: 25MG
Dosage Form/Route: CAPSULE, EXTENDED RELEASE;ORAL
Application: N205122 | Product #001 | TE Code: AB2
Applicant: UPSHER SMITH LABORATORIES LLC
Approved: Mar 11, 2014 | RLD: Yes | RS: No | Type: RX

PATENTS:
Patent 10363224 | Expires: Mar 19, 2033
Patent 9101545 | Expires: Mar 19, 2033
Patent 9555005 | Expires: Mar 19, 2033
Patent 8652527 | Expires: Mar 19, 2033
Patent 8889190 | Expires: Mar 19, 2033